FAERS Safety Report 19880211 (Version 2)
Quarter: 2021Q4

REPORT INFORMATION
  Report Type: Report from Study
  Country: US (occurrence: US)
  Receive Date: 20210925
  Receipt Date: 20211007
  Transmission Date: 20220303
  Serious: Yes (Death, Other)
  Sender: FDA-Public Use
  Company Number: US-GILEAD-2021-0549983

PATIENT
  Age: 66 Year
  Sex: Male
  Weight: 86.17 kg

DRUGS (11)
  1. EMTRICITABINE\TENOFOVIR [Suspect]
     Active Substance: EMTRICITABINE\TENOFOVIR
     Indication: HIV infection
     Dosage: 200 MG/25 MG, QD
     Route: 048
     Dates: start: 202102
  2. ASPIRIN [Concomitant]
     Active Substance: ASPIRIN
  3. ATORVASTATIN [Concomitant]
     Active Substance: ATORVASTATIN
  4. BUPROPION [Concomitant]
     Active Substance: BUPROPION
  5. ISENTRESS [Concomitant]
     Active Substance: RALTEGRAVIR POTASSIUM
  6. LEVOTHYROXINE [Concomitant]
     Active Substance: LEVOTHYROXINE
  7. LORAZEPAM [Concomitant]
     Active Substance: LORAZEPAM
  8. SILDENAFIL [Concomitant]
     Active Substance: SILDENAFIL
     Indication: Pulmonary hypertension
  9. TADALAFIL [Concomitant]
     Active Substance: TADALAFIL
  10. TADALAFIL [Concomitant]
     Active Substance: TADALAFIL
  11. XARELTO [Concomitant]
     Active Substance: RIVAROXABAN

REACTIONS (3)
  - Neuroendocrine carcinoma metastatic [Fatal]
  - Generalised oedema [Unknown]
  - Liver function test increased [Unknown]

NARRATIVE: CASE EVENT DATE: 20210301
